FAERS Safety Report 8262595-X (Version None)
Quarter: 2012Q2

REPORT INFORMATION
  Report Type: 
  Country: None (occurrence: None)
  Receive Date: 20120405
  Receipt Date: 20120329
  Transmission Date: 20120825
  Serious: No
  Sender: FDA-Public Use
  Company Number: US-JNJFOC-20120314793

PATIENT
  Sex: Female
  Weight: 65.77 kg

DRUGS (4)
  1. DURAGESIC-100 [Suspect]
     Indication: PAIN
     Route: 062
     Dates: start: 20110327
  2. DURAGESIC-100 [Suspect]
     Route: 062
     Dates: start: 20111201
  3. DURAGESIC-100 [Suspect]
     Route: 062
     Dates: start: 20111201
  4. DURAGESIC-100 [Suspect]
     Indication: CERVICAL SPINAL STENOSIS
     Route: 062
     Dates: start: 20110327

REACTIONS (5)
  - WITHDRAWAL SYNDROME [None]
  - MALAISE [None]
  - WRONG TECHNIQUE IN DRUG USAGE PROCESS [None]
  - DRUG DOSE OMISSION [None]
  - PRODUCT QUALITY ISSUE [None]
